FAERS Safety Report 9108381 (Version 2)
Quarter: 2013Q1

REPORT INFORMATION
  Report Type: Spontaneous
  Country: US (occurrence: US)
  Receive Date: 20130222
  Receipt Date: 20130313
  Transmission Date: 20140127
  Serious: No
  Sender: FDA-Public Use
  Company Number: US-TEVA-387748USA

PATIENT
  Age: 90 Year
  Sex: Male
  Weight: 79.45 kg

DRUGS (12)
  1. PROAIR HFA [Suspect]
     Indication: COUGH
     Dosage: 720 MICROGRAM DAILY;
     Route: 055
     Dates: start: 20130125, end: 20130220
  2. DIAZEPAM [Concomitant]
  3. ACTOS [Concomitant]
  4. GLIPIZIDE [Concomitant]
  5. LISINOPRIL [Concomitant]
  6. LEXAPRO [Concomitant]
  7. ANDROGEL [Concomitant]
  8. MIRTAZAPINE [Concomitant]
  9. FUROSEMIDE [Concomitant]
  10. COUMADIN [Concomitant]
  11. JANUVIA [Concomitant]
  12. LANTUS [Concomitant]

REACTIONS (1)
  - Dizziness [Unknown]
